FAERS Safety Report 7933423-4 (Version None)
Quarter: 2011Q4

REPORT INFORMATION
  Report Type: 
  Country: None (occurrence: None)
  Receive Date: 20111122
  Receipt Date: 20111116
  Transmission Date: 20120403
  Serious: Yes (Hospitalization)
  Sender: FDA-Public Use
  Company Number: US-SANOFI-AVENTIS-2011SA075756

PATIENT
  Age: 21 Year
  Sex: Female

DRUGS (2)
  1. LANTUS [Suspect]
     Dosage: 10 UNITS AND 20 UNITS
     Route: 058
  2. NOVOLOG [Suspect]

REACTIONS (5)
  - DIABETIC KETOACIDOSIS [None]
  - DRUG ADMINISTRATION ERROR [None]
  - MEDICATION ERROR [None]
  - HYPERGLYCAEMIA [None]
  - NEPHROLITHIASIS [None]
